FAERS Safety Report 5061720-1 (Version None)
Quarter: 2006Q3

REPORT INFORMATION
  Report Type: 
  Country: None (occurrence: None)
  Receive Date: 20060720
  Receipt Date: 20060711
  Transmission Date: 20061208
  Serious: Yes (Life-Threatening, Hospitalization)
  Sender: FDA-Public Use
  Company Number: NLWYE960804JUL06

PATIENT
  Age: 46 Year
  Sex: Female

DRUGS (6)
  1. EFFEXOR [Suspect]
     Indication: ANXIETY
     Dosage: 75 MG 1X PER 1 DAY
     Dates: start: 20050101, end: 20050101
  2. ACETAMINOPHEN [Concomitant]
  3. OXAZEPAM [Concomitant]
  4. PANTOPRAZOLE SODIUM [Concomitant]
  5. PANTOPRAZOLE SODIUM [Concomitant]
  6. EFFEXOR XR [Concomitant]

REACTIONS (8)
  - BIPOLAR DISORDER [None]
  - BIPOLAR I DISORDER [None]
  - DIARRHOEA [None]
  - DRUG DISPENSING ERROR [None]
  - DRUG PRESCRIBING ERROR [None]
  - HYPERTENSION [None]
  - MYOPATHY TOXIC [None]
  - VOMITING [None]
